FAERS Safety Report 5978947-4 (Version None)
Quarter: 2008Q4

REPORT INFORMATION
  Report Type: 
  Country: None (occurrence: None)
  Receive Date: 20081204
  Receipt Date: 20071119
  Transmission Date: 20090506
  Serious: No
  Sender: FDA-Public Use
  Company Number: US-ABBOTT-07P-163-0425591-00

PATIENT
  Sex: Female
  Weight: 74.91 kg

DRUGS (5)
  1. TRICOR [Suspect]
     Indication: BLOOD TRIGLYCERIDES INCREASED
     Route: 048
     Dates: start: 20070601, end: 20071001
  2. PROPRANOLOL [Concomitant]
     Indication: HYPERTENSION
     Route: 048
     Dates: start: 20050101
  3. ACETYLSALICYLIC ACID SRT [Concomitant]
     Indication: HYPERTENSION
     Route: 048
     Dates: start: 20050101
  4. BUPROPION HCL [Concomitant]
     Indication: ANXIETY
     Route: 048
     Dates: start: 20050101
  5. GLUCOSAMINE [Concomitant]
     Indication: ARTHROPATHY
     Route: 048
     Dates: start: 20050101

REACTIONS (1)
  - HYPOAESTHESIA [None]
